FAERS Safety Report 8584546-0 (Version None)
Quarter: 2012Q3

REPORT INFORMATION
  Report Type: 
  Country: None (occurrence: None)
  Receive Date: 20120730
  Receipt Date: 20120718
  Transmission Date: 20120928
  Serious: Yes (Death, Hospitalization)
  Sender: FDA-Public Use
  Company Number: 2012AP002207

PATIENT
  Age: 65 Year
  Sex: Male

DRUGS (8)
  1. TOPOTECAN HYDROCHLORIDE [Concomitant]
  2. ASCORBIC ACID [Suspect]
     Indication: SMALL CELL LUNG CANCER METASTATIC
     Dosage: IVDRP
     Route: 041
  3. CARBOPLATIN [Concomitant]
  4. PACLITAXEL [Concomitant]
  5. ETOPOSIDE [Concomitant]
  6. VALPROIC ACID [Suspect]
     Indication: PRODUCT USED FOR UNKNOWN INDICATION
  7. LEVETIRACETAM [Suspect]
     Indication: PRODUCT USED FOR UNKNOWN INDICATION
  8. VISCUM ALBUM EXTRACT [Suspect]
     Indication: SMALL CELL LUNG CANCER METASTATIC

REACTIONS (9)
  - CONDITION AGGRAVATED [None]
  - CONVULSIVE THRESHOLD LOWERED [None]
  - CEREBRAL HAEMORRHAGE [None]
  - FATIGUE [None]
  - CONFUSIONAL STATE [None]
  - NEUROLOGICAL DECOMPENSATION [None]
  - AGITATION [None]
  - OEDEMA [None]
  - CONVULSION [None]
